FAERS Safety Report 19326528 (Version 2)
Quarter: 2021Q3

REPORT INFORMATION
  Report Type: Report from Study
  Country: US (occurrence: US)
  Receive Date: 20210528
  Receipt Date: 20210811
  Transmission Date: 20211014
  Serious: Yes (Other)
  Sender: FDA-Public Use
  Company Number: US-GW PHARMA-202105USGW02542

PATIENT

DRUGS (1)
  1. EPIDIOLEX [Suspect]
     Active Substance: CANNABIDIOL
     Indication: PRODUCT USED FOR UNKNOWN INDICATION
     Dosage: 200 MILLIGRAM, QD (QHS, PRESCRIBED ONCE A DAY)
     Route: 048

REACTIONS (4)
  - Cardiac disorder [Unknown]
  - Hallucination [Unknown]
  - Dementia [Unknown]
  - Insomnia [Unknown]
